FAERS Safety Report 4684249-9 (Version None)
Quarter: 2005Q2

REPORT INFORMATION
  Report Type: 
  Country: None (occurrence: None)
  Receive Date: 20050531
  Receipt Date: 20050307
  Transmission Date: 20051028
  Serious: Yes (Other)
  Sender: FDA-Public Use
  Company Number: 200511818US

PATIENT

DRUGS (1)
  1. LOVENOX [Suspect]
     Dosage: 1 MG/KG, IV
     Route: 042

REACTIONS (1)
  - CORONARY ARTERY THROMBOSIS [None]
